FAERS Safety Report 8597998-7 (Version None)
Quarter: 2012Q3

REPORT INFORMATION
  Report Type: 
  Country: None (occurrence: None)
  Receive Date: 20120816
  Receipt Date: 20120806
  Transmission Date: 20120928
  Serious: Yes (Hospitalization)
  Sender: FDA-Public Use
  Company Number: CH-BRISTOL-MYERS SQUIBB COMPANY-16793937

PATIENT
  Age: 70 Year
  Sex: Male

DRUGS (2)
  1. CETUXIMAB [Suspect]
     Indication: TONGUE NEOPLASM MALIGNANT STAGE UNSPECIFIED
     Dosage: 250 MG/M2,500 MG.M2 IN ADJUVANT CYCLE 11-11MAY12,720MG 18-18MAY12,450MG 11JUL12-UNK,965MG
     Route: 042
     Dates: start: 20120511
  2. CISPLATIN [Suspect]
     Indication: TONGUE NEOPLASM MALIGNANT STAGE UNSPECIFIED
     Dosage: LAST DOSE ON 07JUN2012
     Route: 042
     Dates: start: 20120518, end: 20120706

REACTIONS (3)
  - OEDEMA PERIPHERAL [None]
  - HYPOALBUMINAEMIA [None]
  - HEPATIC CIRRHOSIS [None]
